FAERS Safety Report 14456424 (Version 3)
Quarter: 2018Q4

REPORT INFORMATION
  Report Type: Spontaneous
  Country: US (occurrence: US)
  Receive Date: 20180130
  Receipt Date: 20181231
  Transmission Date: 20190204
  Serious: Yes (Death, Other)
  Sender: FDA-Public Use
  Company Number: US-ASTRAZENECA-2018SE10347

PATIENT
  Sex: Female
  Weight: 62.6 kg

DRUGS (11)
  1. METOPROLOL SUCCINATE. [Concomitant]
     Active Substance: METOPROLOL SUCCINATE
  2. ZANTAC [Concomitant]
     Active Substance: RANITIDINE HYDROCHLORIDE
     Route: 048
  3. NEXIUM [Suspect]
     Active Substance: ESOMEPRAZOLE MAGNESIUM
     Indication: GASTROOESOPHAGEAL REFLUX DISEASE
     Route: 048
     Dates: start: 2007, end: 2016
  4. ATORVASTATIN [Concomitant]
     Active Substance: ATORVASTATIN
     Route: 048
  5. LEVOTHYROXINE. [Concomitant]
     Active Substance: LEVOTHYROXINE
  6. MACRODANTIN [Concomitant]
     Active Substance: NITROFURANTOIN
     Route: 048
  7. ARTHROTEC [Concomitant]
     Active Substance: DICLOFENAC SODIUM\MISOPROSTOL
  8. TRIAMTERENE. [Concomitant]
     Active Substance: TRIAMTERENE
  9. MACRODANTIN [Concomitant]
     Active Substance: NITROFURANTOIN
     Route: 048
  10. TAMOXIFEN [Concomitant]
     Active Substance: TAMOXIFEN
  11. CIPRO [Concomitant]
     Active Substance: CIPROFLOXACIN HYDROCHLORIDE
     Route: 048

REACTIONS (6)
  - Haemorrhagic stroke [Fatal]
  - Chronic kidney disease [Unknown]
  - Myeloid leukaemia [Fatal]
  - Ischaemic stroke [Fatal]
  - Renal failure [Unknown]
  - Cardio-respiratory arrest [Fatal]
